FAERS Safety Report 7620492 (Version 4)
Quarter: 2013Q4

REPORT INFORMATION
  Report Type: Spontaneous
  Country: US (occurrence: US)
  Receive Date: 20101007
  Receipt Date: 20131213
  Transmission Date: 20140711
  Serious: Yes (Other)
  Sender: FDA-Public Use
  Company Number: US-BAYER-201035765NA

PATIENT
  Age: 38 Year
  Sex: Female

DRUGS (9)
  1. YASMIN [Suspect]
     Indication: ORAL CONTRACEPTION
     Dosage: UNK UNK, UNK
     Route: 048
     Dates: start: 20030723, end: 20091007
  2. OCELLA [Suspect]
     Dosage: UNK
     Dates: start: 20030723, end: 20091007
  3. HYZAAR [Concomitant]
     Indication: HYPERTENSION
  4. FAMOTIDINE [Concomitant]
     Indication: DYSPEPSIA
     Dosage: 20 MG, UNK
  5. FAMOTIDINE [Concomitant]
     Indication: GASTROOESOPHAGEAL REFLUX DISEASE
  6. IRON SUPPLEMENT [Concomitant]
     Indication: ANAEMIA
  7. LACLOTION [Concomitant]
     Dosage: 12 %, UNK
  8. DIFLUNISAL [Concomitant]
     Dosage: 500 MG, UNK
  9. COLACE [Concomitant]
     Dosage: UNK
     Dates: start: 20031006

REACTIONS (5)
  - Gallbladder disorder [None]
  - Biliary dyskinesia [None]
  - Bile duct stone [None]
  - Cholecystitis chronic [None]
  - Mental disorder [None]
